FAERS Safety Report 10405909 (Version 2)
Quarter: 2015Q2

REPORT INFORMATION
  Report Type: Report from Study
  Country: TR (occurrence: TR)
  Receive Date: 20140825
  Receipt Date: 20150421
  Transmission Date: 20150821
  Serious: Yes (Hospitalization)
  Sender: FDA-Public Use
  Company Number: TR-NOVOPROD-419737

PATIENT
  Sex: Female
  Weight: 3.69 kg

DRUGS (3)
  1. NOVORAPID [Suspect]
     Active Substance: INSULIN ASPART
     Indication: GESTATIONAL DIABETES
     Dosage: 22 U, QD
     Route: 064
     Dates: start: 20140612, end: 20140705
  2. INSULIN DETEMIR FLEXPEN [Suspect]
     Active Substance: INSULIN DETEMIR
     Indication: GESTATIONAL DIABETES
     Dosage: 5 U, QD
     Route: 064
     Dates: start: 20140612, end: 20140705
  3. FERRO SANOL [Concomitant]
     Active Substance: FERROUS SULFATE\GLYCINE
     Indication: MINERAL SUPPLEMENTATION
     Dosage: 1 X 2
     Route: 064
     Dates: start: 201405

REACTIONS (2)
  - Neonatal tachypnoea [Recovered/Resolved]
  - Foetal exposure during pregnancy [Recovered/Resolved]

NARRATIVE: CASE EVENT DATE: 20140612
